FAERS Safety Report 19123306 (Version 1)
Quarter: 2021Q2

REPORT INFORMATION
  Report Type: Report from Study
  Country: IN (occurrence: IN)
  Receive Date: 20210412
  Receipt Date: 20210412
  Transmission Date: 20210717
  Serious: Yes (Other)
  Sender: FDA-Public Use
  Company Number: NVSC2020IN294752

PATIENT
  Age: 36 Year
  Sex: Female
  Weight: 61 kg

DRUGS (1)
  1. VYSOV M [Suspect]
     Active Substance: METFORMIN HYDROCHLORIDE\VILDAGLIPTIN
     Indication: DIABETES MELLITUS
     Dosage: UNK UNK, BID (1?0?1)
     Route: 048
     Dates: start: 20201016

REACTIONS (12)
  - Back pain [Not Recovered/Not Resolved]
  - Malaise [Unknown]
  - Vomiting [Recovered/Resolved]
  - Swelling [Not Recovered/Not Resolved]
  - Pain in extremity [Not Recovered/Not Resolved]
  - Abdominal pain upper [Unknown]
  - Dyspepsia [Recovered/Resolved]
  - Kidney infection [Not Recovered/Not Resolved]
  - Blood glucose fluctuation [Unknown]
  - Abdominal pain [Not Recovered/Not Resolved]
  - Uterine pain [Unknown]
  - Flatulence [Recovered/Resolved]
